FAERS Safety Report 9083279 (Version 1)
Quarter: 2013Q1

REPORT INFORMATION
  Report Type: Report from Study
  Country: US (occurrence: US)
  Receive Date: 20130129
  Receipt Date: 20130129
  Transmission Date: 20140127
  Serious: Yes (Other)
  Sender: FDA-Public Use
  Company Number: US-ABBOTT-12P-163-0946823-00

PATIENT
  Age: 29 Year
  Sex: Male

DRUGS (5)
  1. HUMIRA 40 MG/0.8 ML PEN [Suspect]
     Indication: PSORIASIS
  2. HUMIRA 40 MG/0.8 ML PEN [Suspect]
     Dosage: 80 MG (2, 40MG INJECTIONS)
     Dates: start: 20120517, end: 20120517
  3. HUMIRA 40 MG/0.8 ML PEN [Suspect]
     Dates: start: 20120525
  4. IMITREX [Concomitant]
     Indication: MIGRAINE
  5. TOPIRAMATE [Concomitant]
     Indication: MIGRAINE PROPHYLAXIS

REACTIONS (4)
  - Palpitations [Recovered/Resolved]
  - Therapeutic response delayed [Unknown]
  - Migraine [Unknown]
  - Psoriasis [Unknown]
